FAERS Safety Report 12480614 (Version 1)
Quarter: 2016Q2

REPORT INFORMATION
  Report Type: Spontaneous
  Country: GB (occurrence: GB)
  Receive Date: 20160620
  Receipt Date: 20160620
  Transmission Date: 20160815
  Serious: Yes (Other)
  Sender: FDA-Public Use
  Company Number: GB-GLAXOSMITHKLINE-GB2016086250

PATIENT
  Age: 65 Year
  Sex: Male

DRUGS (8)
  1. LANSOPRAZOLE. [Concomitant]
     Active Substance: LANSOPRAZOLE
  2. MST CONTINUS [Concomitant]
     Active Substance: MORPHINE SULFATE
  3. SYMBICORT [Concomitant]
     Active Substance: BUDESONIDE\FORMOTEROL FUMARATE DIHYDRATE
  4. ASPIRIN. [Concomitant]
     Active Substance: ASPIRIN
  5. UNIPHYLLIN CONTINUS [Concomitant]
     Active Substance: THEOPHYLLINE ANHYDROUS
  6. CARBOCISTEINE [Concomitant]
     Active Substance: CARBOCYSTEINE
  7. LAMOTRIGINE. [Suspect]
     Active Substance: LAMOTRIGINE
     Indication: EPILEPSY
     Dosage: 175 MG, BID
     Route: 048
     Dates: start: 2006
  8. SALBUTAMOL [Concomitant]
     Active Substance: ALBUTEROL

REACTIONS (1)
  - Immunodeficiency common variable [Not Recovered/Not Resolved]

NARRATIVE: CASE EVENT DATE: 2007
